FAERS Safety Report 11395060 (Version 1)
Quarter: 2015Q3

REPORT INFORMATION
  Report Type: Spontaneous
  Country: JP (occurrence: JP)
  Receive Date: 20150819
  Receipt Date: 20150819
  Transmission Date: 20151125
  Serious: Yes (Other)
  Sender: FDA-Public Use
  Company Number: JP-HOSPIRA-1985103

PATIENT
  Age: 74 Year
  Sex: Male
  Weight: 59.4 kg

DRUGS (1)
  1. PRECEDEX [Suspect]
     Active Substance: DEXMEDETOMIDINE HYDROCHLORIDE
     Indication: SEDATIVE THERAPY
     Dosage: 200-1600 MCG
     Route: 042
     Dates: start: 20131007, end: 20131031

REACTIONS (3)
  - Infusion site oedema [Unknown]
  - Infusion site ulcer [Unknown]
  - Vasculitis [Recovered/Resolved]

NARRATIVE: CASE EVENT DATE: 20131017
